FAERS Safety Report 10400845 (Version 1)
Quarter: 2014Q3

REPORT INFORMATION
  Report Type: Spontaneous
  Country: US (occurrence: US)
  Receive Date: 20140821
  Receipt Date: 20140821
  Transmission Date: 20150326
  Serious: No
  Sender: FDA-Public Use
  Company Number: US-ASTRAZENECA-2014SE31391

PATIENT
  Age: 70 Year
  Sex: Male
  Weight: 74.4 kg

DRUGS (5)
  1. LIPITOR [Concomitant]
     Active Substance: ATORVASTATIN CALCIUM
     Indication: BLOOD CHOLESTEROL INCREASED
  2. LOVAZA [Concomitant]
     Active Substance: OMEGA-3-ACID ETHYL ESTERS
     Indication: BLOOD CHOLESTEROL INCREASED
     Dosage: 1 GRAM DAILY
  3. TYMISTA [Concomitant]
     Indication: ASTHMA
     Dosage: 1 SPRAY EACH NOSTRIL DAILY
     Route: 045
  4. SINGULAIR [Concomitant]
     Active Substance: MONTELUKAST SODIUM
  5. SYMBICORT [Suspect]
     Active Substance: BUDESONIDE\FORMOTEROL FUMARATE DIHYDRATE
     Indication: ASTHMA
     Dosage: 160 4.5 MCG, 2 PUFFS BID
     Route: 055
     Dates: start: 201301

REACTIONS (2)
  - Weight increased [Not Recovered/Not Resolved]
  - Dental caries [Unknown]

NARRATIVE: CASE EVENT DATE: 2013
